FAERS Safety Report 11183455 (Version 1)
Quarter: 2015Q2

REPORT INFORMATION
  Report Type: Spontaneous
  Country: CA (occurrence: CA)
  Receive Date: 20150612
  Receipt Date: 20150612
  Transmission Date: 20150821
  Serious: Yes (Other)
  Sender: FDA-Public Use
  Company Number: CA-ROCHE-1591481

PATIENT
  Age: 58 Year
  Sex: Female

DRUGS (3)
  1. ACTEMRA [Suspect]
     Active Substance: TOCILIZUMAB
     Indication: RHEUMATOID ARTHRITIS
     Dosage: 4-8 MG/KG
     Route: 065
     Dates: start: 201102, end: 201412
  2. PLAQUENIL [Concomitant]
     Active Substance: HYDROXYCHLOROQUINE SULFATE
     Dosage: 400 DIE
     Route: 065
  3. ORENCIA [Suspect]
     Active Substance: ABATACEPT
     Indication: RHEUMATOID ARTHRITIS
     Route: 065
     Dates: start: 201412, end: 201503

REACTIONS (5)
  - Hepatic enzyme increased [Unknown]
  - Arthralgia [Unknown]
  - C-reactive protein increased [Unknown]
  - Joint swelling [Unknown]
  - Mesenteritis [Unknown]

NARRATIVE: CASE EVENT DATE: 20150407
